FAERS Safety Report 16287941 (Version 1)
Quarter: 2019Q2

REPORT INFORMATION
  Report Type: Spontaneous
  Country: US (occurrence: US)
  Receive Date: 20190508
  Receipt Date: 20190508
  Transmission Date: 20190711
  Serious: Yes (Hospitalization, Other)
  Sender: FDA-Public Use
  Company Number: US-009507513-1905USA002722

PATIENT
  Age: 60 Year
  Sex: Female
  Weight: 111.6 kg

DRUGS (9)
  1. PREDNISONE. [Concomitant]
     Active Substance: PREDNISONE
     Dosage: UNK
     Dates: start: 20180918
  2. PRINIVIL [Suspect]
     Active Substance: LISINOPRIL
     Dosage: UNK
     Route: 048
     Dates: start: 2016
  3. SIROLIMUS. [Suspect]
     Active Substance: SIROLIMUS
     Indication: CHRONIC GRAFT VERSUS HOST DISEASE
     Dosage: 1 MILLIGRAM, QD
     Route: 048
     Dates: start: 20181009, end: 20190205
  4. PREDNISONE. [Concomitant]
     Active Substance: PREDNISONE
     Dosage: TAPERING DOSE: 10 MILLIGRAM, QD
  5. IBUPROFEN. [Suspect]
     Active Substance: IBUPROFEN
  6. FUROSEMIDE. [Concomitant]
     Active Substance: FUROSEMIDE
     Dosage: UNK
     Dates: start: 20190201, end: 20190203
  7. SIROLIMUS. [Suspect]
     Active Substance: SIROLIMUS
     Dosage: UNK
     Dates: start: 20190228
  8. GLOBULIN, IMMUNE [Suspect]
     Active Substance: HUMAN IMMUNOGLOBULIN G
     Dosage: UNK
     Route: 042
     Dates: start: 20190201
  9. TORSEMIDE. [Concomitant]
     Active Substance: TORSEMIDE
     Dosage: UNK
     Dates: start: 201807

REACTIONS (2)
  - Acute kidney injury [Recovered/Resolved]
  - Generalised oedema [Recovered/Resolved with Sequelae]

NARRATIVE: CASE EVENT DATE: 20190206
